FAERS Safety Report 4910370-3 (Version None)
Quarter: 2006Q1

REPORT INFORMATION
  Report Type: 
  Country: None (occurrence: None)
  Receive Date: 20060209
  Receipt Date: 20060126
  Transmission Date: 20060701
  Serious: Yes (Life-Threatening, Hospitalization)
  Sender: FDA-Public Use
  Company Number: 13342

PATIENT
  Age: 62 Year
  Sex: Male
  Weight: 65 kg

DRUGS (4)
  1. PACLITAXEL [Suspect]
     Indication: NON-SMALL CELL LUNG CANCER
     Dosage: 300 MG DAILY IV
     Route: 042
     Dates: start: 20060124, end: 20060124
  2. FORTECORTIN [Concomitant]
  3. TAVEGIL [Concomitant]
  4. SOSTRIL [Concomitant]

REACTIONS (4)
  - ANAPHYLACTIC SHOCK [None]
  - BACK PAIN [None]
  - INFUSION RELATED REACTION [None]
  - SOMNOLENCE [None]
